FAERS Safety Report 5977577-8 (Version None)
Quarter: 2008Q4

REPORT INFORMATION
  Report Type: 
  Country: None (occurrence: None)
  Receive Date: 20081125
  Receipt Date: 20081117
  Transmission Date: 20090506
  Serious: Yes (Other)
  Sender: FDA-Public Use
  Company Number: 08H-163-0315186-00

PATIENT
  Sex: Male

DRUGS (1)
  1. LIDOCAINE 1% W/ EPINEPHRINE 1:200,000 [Suspect]
     Indication: ANAESTHESIA
     Dosage: 1 CC, TWICE, SUBCUTANEOUS
     Route: 058
     Dates: start: 20081113, end: 20081113

REACTIONS (2)
  - DRUG INEFFECTIVE [None]
  - SYNCOPE [None]
